FAERS Safety Report 25592391 (Version 4)
Quarter: 2025Q4

REPORT INFORMATION
  Report Type: Report from Study
  Country: US (occurrence: US)
  Receive Date: 20250722
  Receipt Date: 20251126
  Transmission Date: 20260119
  Serious: Yes (Other)
  Sender: PFIZER
  Company Number: US-PFIZER INC-202500126510

PATIENT
  Age: 74 Year
  Sex: Female

DRUGS (17)
  1. IBRANCE [Suspect]
     Active Substance: PALBOCICLIB
     Indication: Breast cancer female
     Dosage: 125 MG, CYCLIC (3 WEEKS ON, 1 WEEK OFF)/125MG DAILY ORALLY, 3WEEKS ON 1 WEEK OFF
     Route: 048
     Dates: start: 20250619
  2. IBRANCE [Suspect]
     Active Substance: PALBOCICLIB
     Dosage: 125 MG, CYCLIC (FOR 21 DAYS AND 7 DAYS OFF)
     Dates: start: 2025
  3. IBRANCE [Suspect]
     Active Substance: PALBOCICLIB
     Dosage: 1-(100 MG) TABLET ORALLY ONCE DAILY FOR 21 DAYS ON THEN 7 DAYS OFF,
     Route: 048
     Dates: start: 20250619
  4. NEXIUM I.V. [Concomitant]
     Active Substance: ESOMEPRAZOLE SODIUM
     Dosage: UNK
  5. SYNTHROID [Concomitant]
     Active Substance: LEVOTHYROXINE SODIUM
     Dosage: UNK
  6. BUPROPION [Concomitant]
     Active Substance: BUPROPION
     Dosage: UNK
  7. SIMVASTATIN [Concomitant]
     Active Substance: SIMVASTATIN
     Dosage: UNK
  8. ANASTROZOLE [Concomitant]
     Active Substance: ANASTROZOLE
     Dosage: UNK
  9. DEXAMETHASONE [Concomitant]
     Active Substance: DEXAMETHASONE
     Dosage: UNK
  10. LOPERAMIDE [Concomitant]
     Active Substance: LOPERAMIDE
     Dosage: UNK
  11. VITAMINS [Concomitant]
     Active Substance: VITAMINS
     Dosage: UNK
  12. METAMUCIL [INULIN] [Concomitant]
     Dosage: UNK
  13. TUMS [Concomitant]
     Active Substance: CALCIUM CARBONATE
     Dosage: UNK
  14. XGEVA [Concomitant]
     Active Substance: DENOSUMAB
     Dosage: UNK
  15. IRON [Concomitant]
     Active Substance: IRON
     Dosage: INFUSIONS
  16. FERRIC POLYSACCHARIDE COMPLEX [Concomitant]
     Active Substance: FERRIC POLYSACCHARIDE COMPLEX
     Dosage: UNK
  17. CANNABIDIOL [Concomitant]
     Active Substance: CANNABIDIOL
     Dosage: UNK

REACTIONS (9)
  - Blood iron decreased [Recovering/Resolving]
  - Dyspnoea [Not Recovered/Not Resolved]
  - Dizziness [Not Recovered/Not Resolved]
  - Red blood cell count decreased [Not Recovered/Not Resolved]
  - White blood cell count decreased [Not Recovered/Not Resolved]
  - Asthenia [Not Recovered/Not Resolved]
  - Diarrhoea [Recovered/Resolved]
  - Fatigue [Not Recovered/Not Resolved]
  - Nausea [Recovered/Resolved]

NARRATIVE: CASE EVENT DATE: 20250101
